FAERS Safety Report 23990328 (Version 1)
Quarter: 2024Q2

REPORT INFORMATION
  Report Type: Spontaneous
  Country: PR (occurrence: PR)
  Receive Date: 20240619
  Receipt Date: 20240619
  Transmission Date: 20240716
  Serious: Yes (Other)
  Sender: FDA-Public Use
  Company Number: PR-BRISTOL-MYERS SQUIBB COMPANY-2024-097294

PATIENT
  Age: 80 Year
  Sex: Male

DRUGS (1)
  1. REVLIMID [Suspect]
     Active Substance: LENALIDOMIDE
     Indication: Plasma cell myeloma
     Dosage: DOSE : 15 MG;     FREQ : ONE CAPSULES DAILY FOR 21 DAY AND 7 DAYS OFF
     Route: 048
     Dates: start: 20221021

REACTIONS (2)
  - Heart rate irregular [Unknown]
  - COVID-19 [Unknown]

NARRATIVE: CASE EVENT DATE: 20240531
